FAERS Safety Report 12862864 (Version 1)
Quarter: 2016Q4

REPORT INFORMATION
  Report Type: Spontaneous
  Country: US (occurrence: US)
  Receive Date: 20161019
  Receipt Date: 20161019
  Transmission Date: 20170207
  Serious: Yes (Hospitalization, Other)
  Sender: FDA-Public Use
  Company Number: US-SCIEGEN PHARMACEUTICALS INC-2016SCILIT00495

PATIENT
  Age: 21 Year
  Sex: Female

DRUGS (1)
  1. BUPROPION HYDROCHLORIDE. [Suspect]
     Active Substance: BUPROPION HYDROCHLORIDE
     Indication: PRODUCT USED FOR UNKNOWN INDICATION
     Dosage: 13.5 G, UNK
     Route: 065

REACTIONS (30)
  - Mydriasis [Unknown]
  - Delirium [Recovering/Resolving]
  - Anion gap increased [Unknown]
  - Transaminases increased [None]
  - Lethargy [Recovering/Resolving]
  - Memory impairment [Recovering/Resolving]
  - Hallucination, visual [Recovering/Resolving]
  - Hyperreflexia [Unknown]
  - Post-traumatic stress disorder [Unknown]
  - Agitation [Recovering/Resolving]
  - Somnolence [Recovering/Resolving]
  - Leukocytosis [Unknown]
  - Mental status changes [Recovering/Resolving]
  - Blood creatinine increased [Recovered/Resolved]
  - Sinus tachycardia [Recovered/Resolved]
  - Depressive symptom [Recovering/Resolving]
  - Electrocardiogram QRS complex prolonged [Recovering/Resolving]
  - Anosognosia [Recovering/Resolving]
  - Flushing [Unknown]
  - Encephalopathy [Recovering/Resolving]
  - Overdose [None]
  - Stridor [Unknown]
  - Oropharyngeal pain [Unknown]
  - Electrocardiogram QT prolonged [Recovering/Resolving]
  - Lactic acidosis [Recovered/Resolved]
  - Confusional state [Recovering/Resolving]
  - Generalised tonic-clonic seizure [Unknown]
  - Suicide attempt [Recovering/Resolving]
  - Sinus bradycardia [Recovered/Resolved]
  - Hypotension [Unknown]
